FAERS Safety Report 9718873 (Version 1)
Quarter: 2013Q4

REPORT INFORMATION
  Report Type: Spontaneous
  Country: TH (occurrence: TH)
  Receive Date: 20131127
  Receipt Date: 20131127
  Transmission Date: 20140711
  Serious: Yes (Hospitalization, Other)
  Sender: FDA-Public Use
  Company Number: TH-BAXTER-2013BAX046300

PATIENT
  Age: 54 Year
  Sex: Female

DRUGS (1)
  1. DIANEAL LOW CALCIUM WITH 1.5 PERCENT W/V DEXTROSE [Suspect]
     Indication: PERITONEAL DIALYSIS
     Route: 033

REACTIONS (10)
  - Abdominal pain [Unknown]
  - Peritonitis [Not Recovered/Not Resolved]
  - Infection [Unknown]
  - Abdominal discomfort [Unknown]
  - Abdominal pain upper [Unknown]
  - Peritoneal dialysis complication [Unknown]
  - Crying [Unknown]
  - Peritoneal effluent abnormal [Unknown]
  - Pain [Unknown]
  - Contusion [Unknown]
